FAERS Safety Report 17780726 (Version 7)
Quarter: 2020Q4

REPORT INFORMATION
  Report Type: Spontaneous
  Country: GB (occurrence: GB)
  Receive Date: 20200513
  Receipt Date: 20201008
  Transmission Date: 20210113
  Serious: Yes (Life-Threatening, Hospitalization, Other)
  Sender: FDA-Public Use
  Company Number: NVSC2020GB128998

PATIENT
  Age: 90 Year
  Sex: Female

DRUGS (8)
  1. NIFEDIPINE. [Interacting]
     Active Substance: NIFEDIPINE
     Dosage: 10 MG, QD (LONG-STANDING MODIFIED RELEASE)
     Route: 048
  2. NIFEDIPINE. [Interacting]
     Active Substance: NIFEDIPINE
     Indication: HYPERTENSION
     Dosage: 40 MG, QD
     Route: 065
  3. CLOPIDOGREL [Interacting]
     Active Substance: CLOPIDOGREL BISULFATE
     Indication: TRANSIENT ISCHAEMIC ATTACK
     Dosage: 300 MG, QD
     Route: 065
  4. CLOPIDOGREL [Interacting]
     Active Substance: CLOPIDOGREL BISULFATE
     Dosage: 75 MG, QD (STARTED FOLLOWING TIA CLINIC APPOINTMENT ON DAY 20 TIA)
     Route: 048
  5. ASPIRIN. [Concomitant]
     Active Substance: ASPIRIN
     Indication: PRODUCT USED FOR UNKNOWN INDICATION
     Dosage: 75 MG, QD
     Route: 065
  6. ATORVASTATIN [Suspect]
     Active Substance: ATORVASTATIN
     Indication: TRANSIENT ISCHAEMIC ATTACK
     Dosage: 160 MG, QD
     Route: 065
  7. ATORVASTATIN [Interacting]
     Active Substance: ATORVASTATIN
     Dosage: 40 MG QD NIGHTLY (STARTED IN TIA ON DAY 92)
     Route: 048
  8. ASPIRIN. [Concomitant]
     Active Substance: ASPIRIN
     Dosage: 300 MG, QD (BETWEEN DAY 1 AND DAY 20)
     Route: 065

REACTIONS (10)
  - Alanine aminotransferase increased [Recovered/Resolved]
  - Epistaxis [Unknown]
  - Drug-induced liver injury [Recovered/Resolved]
  - Arthralgia [Recovered/Resolved]
  - Liver function test abnormal [Unknown]
  - Potentiating drug interaction [Unknown]
  - Blood alkaline phosphatase increased [Unknown]
  - Hypergammaglobulinaemia [Unknown]
  - Diverticulum intestinal [Unknown]
  - Drug interaction [Recovered/Resolved]
